FAERS Safety Report 13284192 (Version 1)
Quarter: 2017Q1

REPORT INFORMATION
  Report Type: Spontaneous
  Country: US (occurrence: US)
  Receive Date: 20170301
  Receipt Date: 20170301
  Transmission Date: 20170428
  Serious: Yes (Hospitalization)
  Sender: FDA-Public Use
  Company Number: US-TEVA-742494USA

PATIENT
  Age: 20 Year
  Sex: Male

DRUGS (3)
  1. CLOFARABINE [Suspect]
     Active Substance: CLOFARABINE
     Route: 065
  2. CYCLOPHOSPHAMIDE. [Suspect]
     Active Substance: CYCLOPHOSPHAMIDE
     Route: 065
  3. ETOPOSIDE. [Suspect]
     Active Substance: ETOPOSIDE
     Dosage: UNKNOWN FORM STRENGTH
     Route: 065

REACTIONS (1)
  - Remission not achieved [Unknown]

NARRATIVE: CASE EVENT DATE: 201612
